FAERS Safety Report 7973812-5 (Version None)
Quarter: 2011Q4

REPORT INFORMATION
  Report Type: 
  Country: None (occurrence: None)
  Receive Date: 20111213
  Receipt Date: 20111130
  Transmission Date: 20120403
  Serious: Yes (Death, Life-Threatening)
  Sender: FDA-Public Use
  Company Number: CH-ELI_LILLY_AND_COMPANY-CH201110005463

PATIENT
  Age: 42 Year
  Sex: Male

DRUGS (4)
  1. TRAZODONE HCL [Concomitant]
     Dosage: 300 MG, QD
     Route: 048
     Dates: start: 20110527, end: 20110709
  2. TRUXAL [Concomitant]
     Dosage: 75 MG, QD
     Route: 048
     Dates: start: 20110531, end: 20110709
  3. ZYPREXA [Suspect]
     Indication: DEPRESSION
     Dosage: 5 MG, QD
     Route: 048
     Dates: start: 20110705, end: 20110709
  4. QUILONORM                               /AUT/ [Concomitant]
     Dosage: 1125 MG, QD
     Route: 048
     Dates: start: 20110331, end: 20110709

REACTIONS (1)
  - COMPLETED SUICIDE [None]
